FAERS Safety Report 6665680-9 (Version None)
Quarter: 2010Q2

REPORT INFORMATION
  Report Type: 
  Country: None (occurrence: None)
  Receive Date: 20100402
  Receipt Date: 20100322
  Transmission Date: 20101027
  Serious: Yes (Hospitalization)
  Sender: FDA-Public Use
  Company Number: US-JNJFOC-20100107422

PATIENT
  Sex: Female
  Weight: 68.22 kg

DRUGS (5)
  1. TYLENOL [Suspect]
     Route: 048
  2. TYLENOL [Suspect]
     Indication: ARTHRALGIA
     Route: 048
  3. MULTI-VITAMINS [Concomitant]
  4. NAPRELAN [Concomitant]
  5. GLUCOSAMINE + CHONDROITIN SULFATE [Concomitant]

REACTIONS (5)
  - ANGINA PECTORIS [None]
  - DYSPNOEA [None]
  - NAUSEA [None]
  - PALPITATIONS [None]
  - PRODUCT QUALITY ISSUE [None]
